FAERS Safety Report 6910674-9 (Version None)
Quarter: 2010Q3

REPORT INFORMATION
  Report Type: 
  Country: None (occurrence: None)
  Receive Date: 20100806
  Receipt Date: 20100726
  Transmission Date: 20110219
  Serious: Yes (Hospitalization)
  Sender: FDA-Public Use
  Company Number: DE-JNJFOC-20100800196

PATIENT
  Sex: Female

DRUGS (5)
  1. REOPRO [Suspect]
     Indication: IN-STENT ARTERIAL RESTENOSIS
     Route: 042
  2. REOPRO [Suspect]
     Indication: CORONARY ARTERY THROMBOSIS
     Route: 042
  3. CLOPIDOGREL [Concomitant]
  4. ASPIRIN [Concomitant]
  5. HEPARIN [Concomitant]

REACTIONS (4)
  - BLOOD GASES ABNORMAL [None]
  - DRUG EFFECT DECREASED [None]
  - HAEMOGLOBIN DECREASED [None]
  - HAEMOPTYSIS [None]
